FAERS Safety Report 16393271 (Version 2)
Quarter: 2019Q2

REPORT INFORMATION
  Report Type: Report from Study
  Country: CO (occurrence: CO)
  Receive Date: 20190605
  Receipt Date: 20190617
  Transmission Date: 20190711
  Serious: Yes (Death, Life-Threatening, Hospitalization, Other)
  Sender: FDA-Public Use
  Company Number: CO-SA-2019SA138267

PATIENT
  Age: 7 Month
  Sex: Male

DRUGS (1)
  1. ALGLUCOSIDASE ALFA [Suspect]
     Active Substance: ALGLUCOSIDASE ALFA
     Indication: GLYCOGEN STORAGE DISEASE TYPE II
     Dosage: 50 MG/ML, QOW, 3 VIALS
     Route: 041
     Dates: start: 20190327

REACTIONS (6)
  - Cardio-respiratory arrest [Fatal]
  - Pyrexia [Not Recovered/Not Resolved]
  - Condition aggravated [Recovering/Resolving]
  - Oxygen saturation decreased [Recovered/Resolved]
  - Increased bronchial secretion [Not Recovered/Not Resolved]
  - Cough [Not Recovered/Not Resolved]

NARRATIVE: CASE EVENT DATE: 20190516
